FAERS Safety Report 9300869 (Version 1)
Quarter: 2013Q2

REPORT INFORMATION
  Report Type: Spontaneous
  Country: US (occurrence: None)
  Receive Date: 20130520
  Receipt Date: 20130520
  Transmission Date: 20140414
  Serious: No
  Sender: FDA-Public Use
  Company Number: None

PATIENT
  Age: 72 Year
  Sex: Male
  Weight: 71.67 kg

DRUGS (1)
  1. FLOMAX [Suspect]
     Indication: BLADDER DISORDER
     Dates: start: 20000210, end: 20091201

REACTIONS (4)
  - Surgical failure [None]
  - Floppy iris syndrome [None]
  - Procedural complication [None]
  - Astigmatism [None]
